FAERS Safety Report 22519052 (Version 2)
Quarter: 2024Q1

REPORT INFORMATION
  Report Type: Other
  Country: AT (occurrence: None)
  Receive Date: 20230605
  Receipt Date: 20240219
  Transmission Date: 20240409
  Serious: Yes (Other)
  Sender: FDA-Public Use
  Company Number: AT-ROCHE-3355034

PATIENT

DRUGS (2)
  1. BEVACIZUMAB [Suspect]
     Active Substance: BEVACIZUMAB
     Indication: Colorectal cancer metastatic
     Dosage: 5 MG PER KILOGRAM OF BODY WEIGHT, WAS ADMINISTERED INTRAVENOUSLY ON DAYS 1 AND 15
     Route: 042
  2. TIPIRACIL HYDROCHLORIDE\TRIFLURIDINE [Suspect]
     Active Substance: TIPIRACIL HYDROCHLORIDE\TRIFLURIDINE
     Indication: Colorectal cancer metastatic
     Route: 065

REACTIONS (14)
  - Neutropenia [Unknown]
  - Hypertension [Unknown]
  - Nausea [Unknown]
  - Anaemia [Unknown]
  - Asthenia [Unknown]
  - Fatigue [Unknown]
  - Diarrhoea [Unknown]
  - Decreased appetite [Unknown]
  - Vomiting [Unknown]
  - Thrombocytopenia [Unknown]
  - Neutrophil count decreased [Unknown]
  - Abdominal pain [Unknown]
  - Stomatitis [Unknown]
  - Constipation [Unknown]
